FAERS Safety Report 10554327 (Version 4)
Quarter: 2014Q4

REPORT INFORMATION
  Report Type: Spontaneous
  Country: BR (occurrence: BR)
  Receive Date: 20141030
  Receipt Date: 20141224
  Transmission Date: 20150529
  Serious: Yes (Other)
  Sender: FDA-Public Use
  Company Number: BR-JNJFOC-20141017449

PATIENT
  Age: 72 Year
  Sex: Female

DRUGS (11)
  1. TRAMAL [Suspect]
     Active Substance: TRAMADOL
     Indication: PAIN
     Route: 065
  2. VASTAREL [Concomitant]
     Active Substance: TRIMETAZIDINE DIHYDROCHLORIDE
     Indication: PRODUCT USED FOR UNKNOWN INDICATION
     Route: 065
  3. OSCAL D [Concomitant]
     Active Substance: CALCIUM CARBONATE\CHOLECALCIFEROL
     Indication: PRODUCT USED FOR UNKNOWN INDICATION
     Route: 065
  4. SUSTRATE [Concomitant]
     Active Substance: PROPATYL NITRATE
     Indication: PRODUCT USED FOR UNKNOWN INDICATION
     Route: 065
  5. CENTRUM SELECT [Suspect]
     Active Substance: VITAMINS
     Indication: MALNUTRITION
     Route: 065
  6. LUFTAL [Concomitant]
     Indication: PRODUCT USED FOR UNKNOWN INDICATION
     Route: 065
  7. SINVASCOR [Concomitant]
     Active Substance: SIMVASTATIN
     Indication: PRODUCT USED FOR UNKNOWN INDICATION
     Route: 065
  8. FRONTAL [Concomitant]
     Active Substance: ALPRAZOLAM
     Indication: PRODUCT USED FOR UNKNOWN INDICATION
     Route: 065
  9. SOMALGIN [Concomitant]
     Active Substance: ASPIRIN\DIHYDROXYALUMINUM AMINOACETATE ANHYDROUS\MAGNESIUM CARBONATE
     Indication: PRODUCT USED FOR UNKNOWN INDICATION
     Route: 065
  10. TRAMAL [Suspect]
     Active Substance: TRAMADOL
     Indication: PAIN
     Route: 065
  11. LEXOTAN [Concomitant]
     Active Substance: BROMAZEPAM
     Indication: PRODUCT USED FOR UNKNOWN INDICATION
     Route: 065

REACTIONS (9)
  - Gastroenteritis [Recovered/Resolved]
  - Tremor [Recovered/Resolved]
  - Muscle spasms [Unknown]
  - Chills [Recovered/Resolved]
  - Adverse drug reaction [Unknown]
  - Drug ineffective [Recovered/Resolved]
  - Feeling cold [Recovered/Resolved]
  - Nervousness [Unknown]
  - Hypotension [Unknown]
